FAERS Safety Report 23888848 (Version 1)
Quarter: 2024Q2

REPORT INFORMATION
  Report Type: Spontaneous
  Country: US (occurrence: None)
  Receive Date: 20240522
  Receipt Date: 20240522
  Transmission Date: 20240715
  Serious: Yes (Hospitalization, Disabling)
  Sender: FDA-Public Use
  Company Number: None

PATIENT
  Age: 74 Year
  Sex: Male
  Weight: 68 kg

DRUGS (1)
  1. APIXABAN [Suspect]
     Active Substance: APIXABAN
     Indication: Atrial fibrillation
     Dosage: FREQUENCY : TWICE A DAY;?
     Route: 048
     Dates: start: 20230520, end: 20240308

REACTIONS (11)
  - Aphasia [None]
  - Paralysis [None]
  - Cerebral haemorrhage [None]
  - Hypertension [None]
  - Facial paralysis [None]
  - Thalamus haemorrhage [None]
  - Hydrocephalus [None]
  - Respiratory distress [None]
  - Aspiration [None]
  - Pneumonia [None]
  - Acute kidney injury [None]

NARRATIVE: CASE EVENT DATE: 20240308
